FAERS Safety Report 22624851 (Version 3)
Quarter: 2023Q4

REPORT INFORMATION
  Report Type: Report from Study
  Country: US (occurrence: US)
  Receive Date: 20230621
  Receipt Date: 20231212
  Transmission Date: 20240109
  Serious: Yes (Life-Threatening, Hospitalization)
  Sender: FDA-Public Use
  Company Number: US-ARGENX-2023-ARGX-US001973

PATIENT

DRUGS (1)
  1. VYVGART [Suspect]
     Active Substance: EFGARTIGIMOD ALFA-FCAB
     Indication: Myasthenia gravis
     Dosage: UNK
     Route: 042
     Dates: start: 20221130

REACTIONS (8)
  - Mechanical ventilation [Unknown]
  - Back pain [Unknown]
  - Urinary tract infection [Unknown]
  - Blood pressure increased [Unknown]
  - Spinal operation [Unknown]
  - Dyspnoea [Unknown]
  - Spinal fracture [Unknown]
  - Abdominal pain upper [Unknown]

NARRATIVE: CASE EVENT DATE: 20230707
